FAERS Safety Report 16658253 (Version 1)
Quarter: 2019Q3

REPORT INFORMATION
  Report Type: Spontaneous
  Country: US (occurrence: US)
  Receive Date: 20190801
  Receipt Date: 20190801
  Transmission Date: 20191004
  Serious: Yes (Hospitalization)
  Sender: FDA-Public Use
  Company Number: US-SMITH AND NEPHEW, INC-2019SMT00054

PATIENT
  Sex: Female
  Weight: 113.83 kg

DRUGS (2)
  1. COLLAGENASE SANTYL [Suspect]
     Active Substance: COLLAGENASE CLOSTRIDIUM HISTOLYTICUM
     Indication: WOUND TREATMENT
     Dosage: SIZE OF DIME, 2X/WEEK
     Dates: end: 2019
  2. SILVER NITRATE (MFR UNKNOWN) [Suspect]
     Active Substance: SILVER NITRATE
     Indication: WOUND TREATMENT
     Dosage: UNK
     Dates: start: 2019

REACTIONS (4)
  - Drug ineffective [Recovered/Resolved]
  - Wound complication [Not Recovered/Not Resolved]
  - Inappropriate schedule of product administration [Recovered/Resolved]
  - Cellulitis [Unknown]

NARRATIVE: CASE EVENT DATE: 2019
